FAERS Safety Report 13926089 (Version 1)
Quarter: 2017Q3

REPORT INFORMATION
  Report Type: Spontaneous
  Country: US (occurrence: US)
  Receive Date: 20170831
  Receipt Date: 20170831
  Transmission Date: 20171127
  Serious: Yes (Other)
  Sender: FDA-Public Use
  Company Number: US-FRESENIUS KABI-FK201707237

PATIENT
  Age: 7 Year
  Sex: Male
  Weight: 22.4 kg

DRUGS (3)
  1. DIPRIVAN [Suspect]
     Active Substance: PROPOFOL
     Indication: SEDATIVE THERAPY
     Route: 040
  2. DIPRIVAN [Suspect]
     Active Substance: PROPOFOL
     Route: 040
  3. DIPRIVAN [Suspect]
     Active Substance: PROPOFOL
     Route: 040

REACTIONS (1)
  - Drug ineffective [Recovered/Resolved]
